FAERS Safety Report 6643900-4 (Version None)
Quarter: 2010Q1

REPORT INFORMATION
  Report Type: 
  Country: None (occurrence: None)
  Receive Date: 20100317
  Receipt Date: 20100309
  Transmission Date: 20100710
  Serious: Yes (Other)
  Sender: FDA-Public Use
  Company Number: 528755

PATIENT
  Age: 34 Year
  Sex: Female

DRUGS (3)
  1. VANCOMYCIN HYDROCHLORIDE [Suspect]
     Indication: PARONYCHIA
     Dosage: 1 G, INTRAVENOUS DRIP
     Route: 041
  2. ACETAMINOPHEN, CAFFEINE AND DIHYDROCODEINE BITARTRATE [Suspect]
     Indication: DRUG USE FOR UNKNOWN INDICATION
  3. CLINDAMYCIN [Concomitant]

REACTIONS (6)
  - HYPERHIDROSIS [None]
  - MUSCLE SPASMS [None]
  - RED MAN SYNDROME [None]
  - UTERINE HYPERTONUS [None]
  - UTERINE TENDERNESS [None]
  - VAGINAL HAEMORRHAGE [None]
